FAERS Safety Report 6902335-7 (Version None)
Quarter: 2010Q3

REPORT INFORMATION
  Report Type: 
  Country: None (occurrence: None)
  Receive Date: 20100803
  Receipt Date: 20080513
  Transmission Date: 20110219
  Serious: No
  Sender: FDA-Public Use
  Company Number: US-PFIZER INC-2008039910

PATIENT
  Sex: Male

DRUGS (3)
  1. LYRICA [Suspect]
  2. NEURONTIN [Suspect]
  3. REBIF [Concomitant]

REACTIONS (2)
  - DRUG INEFFECTIVE [None]
  - OEDEMA PERIPHERAL [None]
